FAERS Safety Report 15435088 (Version 1)
Quarter: 2018Q3

REPORT INFORMATION
  Report Type: Spontaneous
  Country: US (occurrence: US)
  Receive Date: 20180927
  Receipt Date: 20180927
  Transmission Date: 20181010
  Serious: Yes (Other)
  Sender: FDA-Public Use
  Company Number: US-AKORN PHARMACEUTICALS-2018AKN01254

PATIENT
  Sex: Male

DRUGS (3)
  1. MYORISAN [Suspect]
     Active Substance: ISOTRETINOIN
     Indication: ACNE
     Dosage: 40 MG, 1X/DAY
     Dates: start: 20180402, end: 201806
  2. OTEZLA [Concomitant]
     Active Substance: APREMILAST
  3. MYORISAN [Suspect]
     Active Substance: ISOTRETINOIN
     Indication: PSORIASIS

REACTIONS (4)
  - Depression [Unknown]
  - Drug effect incomplete [Unknown]
  - Drug ineffective for unapproved indication [Unknown]
  - Off label use [Recovered/Resolved]

NARRATIVE: CASE EVENT DATE: 2018
